FAERS Safety Report 21625470 (Version 5)
Quarter: 2023Q1

REPORT INFORMATION
  Report Type: Spontaneous
  Country: AU (occurrence: AU)
  Receive Date: 20221122
  Receipt Date: 20230330
  Transmission Date: 20230418
  Serious: Yes (Other)
  Sender: FDA-Public Use
  Company Number: AU-ABBVIE-4197006

PATIENT
  Age: 25 Year
  Sex: Female

DRUGS (3)
  1. RINVOQ [Suspect]
     Active Substance: UPADACITINIB
     Indication: Dermatitis atopic
     Dosage: END DATE: 2022
     Route: 048
     Dates: start: 202203
  2. RINVOQ [Suspect]
     Active Substance: UPADACITINIB
     Indication: Dermatitis atopic
     Dosage: START DATE: 2022
     Route: 048
     Dates: start: 2022, end: 202208
  3. Protopic Ointment [Concomitant]
     Indication: Product used for unknown indication
     Route: 061

REACTIONS (3)
  - Abortion induced [Unknown]
  - Maternal exposure during pregnancy [Unknown]
  - Unintended pregnancy [Recovered/Resolved]

NARRATIVE: CASE EVENT DATE: 20220820
